FAERS Safety Report 16242351 (Version 12)
Quarter: 2021Q3

REPORT INFORMATION
  Report Type: Spontaneous
  Country: CA (occurrence: CA)
  Receive Date: 20190426
  Receipt Date: 20210803
  Transmission Date: 20211014
  Serious: Yes (Hospitalization, Other)
  Sender: FDA-Public Use
  Company Number: CA-TEVA-2019-CA-1041136

PATIENT
  Age: 77 Year
  Sex: Female

DRUGS (124)
  1. ACEBUTOLOL HYDROCHLORIDE. [Suspect]
     Active Substance: ACEBUTOLOL HYDROCHLORIDE
     Dosage: 400 MILLIGRAM DAILY;
     Route: 065
  2. ACEBUTOLOL HYDROCHLORIDE. [Suspect]
     Active Substance: ACEBUTOLOL HYDROCHLORIDE
     Dosage: 200 MILLIGRAM DAILY;
     Route: 065
  3. AMLODIPINE BESILATE [Suspect]
     Active Substance: AMLODIPINE BESYLATE
     Route: 065
  4. DILTIAZEM HYDROCHLORIDE. [Suspect]
     Active Substance: DILTIAZEM HYDROCHLORIDE
     Indication: HYPERTENSION
     Dosage: 360 MILLIGRAM DAILY;
     Route: 065
  5. DILTIAZEM HYDROCHLORIDE. [Suspect]
     Active Substance: DILTIAZEM HYDROCHLORIDE
     Indication: CHEST PAIN
     Route: 065
  6. LACTULOSE. [Suspect]
     Active Substance: LACTULOSE
     Dosage: 15 MILLIGRAM DAILY;
     Route: 065
  7. SALBUTAMOL SULFATE [Suspect]
     Active Substance: ALBUTEROL SULFATE
     Indication: PRODUCT USED FOR UNKNOWN INDICATION
     Route: 065
  8. CARBAMAZEPINE. [Suspect]
     Active Substance: CARBAMAZEPINE
     Indication: PRODUCT USED FOR UNKNOWN INDICATION
     Dosage: 2 DOSAGE FORMS DAILY;
     Route: 065
  9. CARBAMAZEPINE. [Suspect]
     Active Substance: CARBAMAZEPINE
     Route: 065
  10. CARBAMAZEPINE. [Suspect]
     Active Substance: CARBAMAZEPINE
     Route: 065
  11. APO?DILTIAZ [Suspect]
     Active Substance: DILTIAZEM HYDROCHLORIDE
     Indication: CORONARY ARTERY DISEASE
     Route: 065
  12. QUINAPRIL HYDROCHLORIDE. [Suspect]
     Active Substance: QUINAPRIL HYDROCHLORIDE
     Indication: CORONARY ARTERY DISEASE
     Route: 065
  13. QUINAPRIL. [Suspect]
     Active Substance: QUINAPRIL
     Indication: HYPERTENSION
     Dosage: 40 MILLIGRAM DAILY;
     Route: 065
  14. CYCLOBENZAPRINE. [Suspect]
     Active Substance: CYCLOBENZAPRINE
     Indication: SEIZURE PROPHYLAXIS
     Dosage: 10 MILLIGRAM DAILY;
     Route: 065
  15. CYCLOBENZAPRINE. [Suspect]
     Active Substance: CYCLOBENZAPRINE
     Indication: SEIZURE
     Dosage: 200 MILLIGRAM DAILY;
     Route: 065
  16. CYCLOBENZAPRINE. [Suspect]
     Active Substance: CYCLOBENZAPRINE
     Dosage: 10 MILLIGRAM DAILY;
     Route: 065
  17. PERSANTINE [Suspect]
     Active Substance: DIPYRIDAMOLE
     Dosage: 15 MILLIGRAM DAILY;
     Route: 065
  18. ASPIRIN [ACETYLSALICYLIC ACID] [Concomitant]
     Active Substance: ASPIRIN
     Indication: PRODUCT USED FOR UNKNOWN INDICATION
     Route: 065
  19. SPIRIVA [Concomitant]
     Active Substance: TIOTROPIUM BROMIDE MONOHYDRATE
     Indication: PRODUCT USED FOR UNKNOWN INDICATION
  20. ACEBUTOLOL HYDROCHLORIDE. [Suspect]
     Active Substance: ACEBUTOLOL HYDROCHLORIDE
     Indication: HYPERTENSION
     Dosage: 100 MILLIGRAM DAILY;
     Route: 065
  21. ACEBUTOLOL HYDROCHLORIDE. [Suspect]
     Active Substance: ACEBUTOLOL HYDROCHLORIDE
     Indication: CORONARY ARTERY DISEASE
     Route: 065
  22. FUROSEMIDE. [Suspect]
     Active Substance: FUROSEMIDE
     Dosage: 40 MILLIGRAM DAILY;
     Route: 065
  23. FUROSEMIDE. [Suspect]
     Active Substance: FUROSEMIDE
     Dosage: 4 MILLIGRAM DAILY;
     Route: 065
  24. ROSUVASTATIN CALCIUM. [Suspect]
     Active Substance: ROSUVASTATIN CALCIUM
     Dosage: 400 MILLIGRAM DAILY;
     Route: 065
  25. CARBAMAZEPINE. [Suspect]
     Active Substance: CARBAMAZEPINE
     Indication: SEIZURE PROPHYLAXIS
     Dosage: 200 MILLIGRAM DAILY;
     Route: 065
  26. CARBAMAZEPINE. [Suspect]
     Active Substance: CARBAMAZEPINE
     Indication: SEIZURE
     Dosage: 400 MILLIGRAM DAILY;
     Route: 065
  27. APO?AMITRIPTYLINE [Suspect]
     Active Substance: AMITRIPTYLINE HYDROCHLORIDE
     Indication: INSOMNIA
     Dosage: 75 MILLIGRAM DAILY;
     Route: 065
  28. NITROGLYCERIN. [Suspect]
     Active Substance: NITROGLYCERIN
     Route: 065
  29. QUINAPRIL HYDROCHLORIDE. [Suspect]
     Active Substance: QUINAPRIL HYDROCHLORIDE
     Route: 065
  30. QUINAPRIL. [Suspect]
     Active Substance: QUINAPRIL
     Indication: CORONARY ARTERY DISEASE
     Dosage: 20 MILLIGRAM DAILY;
     Route: 065
  31. CYCLOBENZAPRINE. [Suspect]
     Active Substance: CYCLOBENZAPRINE
     Indication: FIBROMYALGIA
     Dosage: 15 MILLIGRAM DAILY;
     Route: 065
  32. AGGRENOX [Suspect]
     Active Substance: ASPIRIN\DIPYRIDAMOLE
     Indication: CEREBROVASCULAR ACCIDENT
     Dosage: 2 DOSAGE FORMS DAILY;
     Route: 065
  33. BISACODYL. [Suspect]
     Active Substance: BISACODYL
     Indication: CONSTIPATION
     Route: 065
  34. ACETAMINOPHEN. [Concomitant]
     Active Substance: ACETAMINOPHEN
     Indication: FIBROMYALGIA
     Route: 065
  35. ASCORBIC ACID;VACCINIUM MACROCARPON [Concomitant]
     Indication: PRODUCT USED FOR UNKNOWN INDICATION
     Route: 065
  36. ZINC. [Concomitant]
     Active Substance: ZINC
     Indication: PRODUCT USED FOR UNKNOWN INDICATION
  37. AMITRIPTYLINE HYDROCHLORIDE. [Suspect]
     Active Substance: AMITRIPTYLINE HYDROCHLORIDE
     Dosage: 75 MILLIGRAM DAILY;
     Route: 065
  38. AMLODIPINE BESILATE [Suspect]
     Active Substance: AMLODIPINE BESYLATE
     Indication: HYPERTENSION
     Dosage: 5 MILLIGRAM DAILY;
     Route: 065
  39. FUROSEMIDE. [Suspect]
     Active Substance: FUROSEMIDE
     Indication: OEDEMA
     Dosage: 40 MILLIGRAM DAILY;
     Route: 065
  40. ACETAMINOPHEN. [Suspect]
     Active Substance: ACETAMINOPHEN
     Indication: PAIN
     Route: 065
  41. SALBUTAMOL SULFATE [Suspect]
     Active Substance: ALBUTEROL SULFATE
     Dosage: 1600 MICROGRAM DAILY;
     Route: 065
  42. ROSUVASTATIN CALCIUM. [Suspect]
     Active Substance: ROSUVASTATIN CALCIUM
     Indication: CEREBROVASCULAR ACCIDENT
     Dosage: 40 MILLIGRAM DAILY;
     Route: 065
  43. LACTULOSE. [Suspect]
     Active Substance: LACTULOSE
     Indication: CONSTIPATION
     Route: 048
  44. CARBAMAZEPINE. [Suspect]
     Active Substance: CARBAMAZEPINE
     Indication: FIBROMYALGIA
     Dosage: 800 MILLIGRAM DAILY;
     Route: 065
  45. ACETAMINOPHEN/CAFFEINE [Suspect]
     Active Substance: ACETAMINOPHEN\CAFFEINE
     Indication: PAIN
     Dosage: 650 MILLIGRAM DAILY;
     Route: 065
  46. APO?CYCLOBENZAPRINE [Suspect]
     Active Substance: CYCLOBENZAPRINE
     Indication: FIBROMYALGIA
     Dosage: 15 MILLIGRAM DAILY;
     Route: 065
  47. LEVOTHYROXINE SODIUM. [Suspect]
     Active Substance: LEVOTHYROXINE SODIUM
     Indication: THYROID DISORDER
     Dosage: .088 MILLIGRAM DAILY;
     Route: 065
  48. LEVOTHYROXINE SODIUM. [Suspect]
     Active Substance: LEVOTHYROXINE SODIUM
     Dosage: .8 MILLIGRAM DAILY;
     Route: 065
  49. NITROGLYCERIN. [Suspect]
     Active Substance: NITROGLYCERIN
     Indication: CORONARY ARTERY DISEASE
     Route: 061
  50. OXAZEPAM. [Suspect]
     Active Substance: OXAZEPAM
     Indication: CORONARY ARTERY DISEASE
     Route: 065
  51. QUINAPRIL HYDROCHLORIDE. [Suspect]
     Active Substance: QUINAPRIL HYDROCHLORIDE
     Indication: HYPERTENSION
     Dosage: 40 MILLIGRAM DAILY;
     Route: 065
  52. CYCLOBENZAPRINE. [Suspect]
     Active Substance: CYCLOBENZAPRINE
     Dosage: 400 MILLIGRAM DAILY;
     Route: 065
  53. FIBRE SOLUBLE/GLYCEROL/PHOSPHORICACID/POTASSIUMSORBATE/SODIUMBENZOATE [Concomitant]
     Indication: PRODUCT USED FOR UNKNOWN INDICATION
  54. ACEBUTOLOL HYDROCHLORIDE. [Suspect]
     Active Substance: ACEBUTOLOL HYDROCHLORIDE
     Indication: ANGINA PECTORIS
     Dosage: 400 MILLIGRAM DAILY;
     Route: 065
  55. ACEBUTOLOL HYDROCHLORIDE. [Suspect]
     Active Substance: ACEBUTOLOL HYDROCHLORIDE
     Route: 065
  56. AMITRIPTYLINE HYDROCHLORIDE. [Suspect]
     Active Substance: AMITRIPTYLINE HYDROCHLORIDE
     Indication: INSOMNIA
     Dosage: 50 MILLIGRAM DAILY;
     Route: 065
  57. AMLODIPINE BESILATE [Suspect]
     Active Substance: AMLODIPINE BESYLATE
     Indication: ANGINA PECTORIS
     Dosage: 5 MILLIGRAM DAILY;
     Route: 065
  58. DILTIAZEM HYDROCHLORIDE. [Suspect]
     Active Substance: DILTIAZEM HYDROCHLORIDE
     Indication: ANGINA PECTORIS
  59. LACTULOSE. [Suspect]
     Active Substance: LACTULOSE
     Route: 048
  60. MAGNESIUM HYDROXIDE. [Suspect]
     Active Substance: MAGNESIUM HYDROXIDE
     Dosage: 1244 MILLIGRAM DAILY;
     Route: 065
  61. MORPHINE SULFATE. [Suspect]
     Active Substance: MORPHINE SULFATE
     Indication: PAIN
     Dosage: 10 MILLIGRAM DAILY;
     Route: 065
  62. GLUCOSAMINE [Suspect]
     Active Substance: GLUCOSAMINE
     Indication: PAIN
     Route: 065
  63. TIOTROPIUM BROMIDE [Suspect]
     Active Substance: TIOTROPIUM BROMIDE
     Route: 065
  64. AGGRENOX [Suspect]
     Active Substance: ASPIRIN\DIPYRIDAMOLE
     Route: 065
  65. GALANTAMINE HYDROBROMIDE. [Suspect]
     Active Substance: GALANTAMINE HYDROBROMIDE
     Indication: DEMENTIA
     Dosage: 16 MILLIGRAM DAILY;
     Route: 065
  66. PERSANTINE [Suspect]
     Active Substance: DIPYRIDAMOLE
     Indication: CEREBROVASCULAR ACCIDENT
     Dosage: 40 MILLIGRAM DAILY;
     Route: 065
  67. AMLODIPINE BESILATE [Suspect]
     Active Substance: AMLODIPINE BESYLATE
     Indication: CORONARY ARTERY DISEASE
     Route: 065
  68. DILTIAZEM HYDROCHLORIDE. [Suspect]
     Active Substance: DILTIAZEM HYDROCHLORIDE
     Indication: CORONARY ARTERY DISEASE
     Route: 065
  69. MAGNESIUM HYDROXIDE. [Suspect]
     Active Substance: MAGNESIUM HYDROXIDE
     Route: 065
  70. OMEPRAZOLE. [Suspect]
     Active Substance: OMEPRAZOLE
     Indication: DUODENAL ULCER
     Dosage: 20 MILLIGRAM DAILY;
     Route: 065
  71. OMEPRAZOLE. [Suspect]
     Active Substance: OMEPRAZOLE
     Route: 065
  72. APO?CARBAMAZEPINE CR [Suspect]
     Active Substance: CARBAMAZEPINE
     Indication: PROPHYLAXIS
     Dosage: 400 MILLIGRAM DAILY; TABLET (EXTENDEDRELEASE)
     Route: 065
  73. GLUCOSAMINE [Suspect]
     Active Substance: GLUCOSAMINE
     Dosage: 100 MILLIGRAM DAILY;
     Route: 065
  74. NITROGLYCERIN. [Suspect]
     Active Substance: NITROGLYCERIN
     Indication: ANGINA PECTORIS
     Dosage: .4 MILLIGRAM DAILY;
     Route: 065
  75. NITROGLYCERIN. [Suspect]
     Active Substance: NITROGLYCERIN
     Route: 065
  76. CYCLOBENZAPRINE. [Suspect]
     Active Substance: CYCLOBENZAPRINE
     Dosage: 15 MILLIGRAM DAILY;
     Route: 065
  77. ORAMORPH SR SUSTAINED RELEASE [Suspect]
     Active Substance: MORPHINE SULFATE
     Indication: PAIN
     Dosage: 10 MILLIGRAM DAILY;
     Route: 030
  78. AMITRIPTYLINE HYDROCHLORIDE. [Suspect]
     Active Substance: AMITRIPTYLINE HYDROCHLORIDE
     Dosage: 75 MILLIGRAM DAILY;
     Route: 065
  79. AMLODIPINE BESILATE [Suspect]
     Active Substance: AMLODIPINE BESYLATE
     Route: 065
  80. LEVOFLOXACIN. [Suspect]
     Active Substance: LEVOFLOXACIN
     Indication: URINARY TRACT INFECTION
     Dosage: 250 MILLIGRAM DAILY;
     Route: 065
  81. MORPHINE SULFATE. [Suspect]
     Active Substance: MORPHINE SULFATE
     Indication: FIBROMYALGIA
     Route: 065
  82. SALBUTAMOL SULFATE [Suspect]
     Active Substance: ALBUTEROL SULFATE
     Dosage: 100 MILLIGRAM DAILY;
     Route: 065
  83. LEVOTHYROXINE SODIUM. [Suspect]
     Active Substance: LEVOTHYROXINE SODIUM
     Indication: RADIOACTIVE IODINE THERAPY
     Route: 065
  84. NITROGLYCERIN. [Suspect]
     Active Substance: NITROGLYCERIN
     Dosage: .6 MILLIGRAM DAILY;
     Route: 065
  85. OXAZEPAM. [Suspect]
     Active Substance: OXAZEPAM
     Indication: HYPERTENSION
     Dosage: 40 MILLIGRAM DAILY;
     Route: 065
  86. OXAZEPAM. [Suspect]
     Active Substance: OXAZEPAM
     Dosage: 40 MILLIGRAM DAILY;
     Route: 065
  87. DIPYRIDAMOLE. [Suspect]
     Active Substance: DIPYRIDAMOLE
     Indication: CEREBROVASCULAR ACCIDENT
     Dosage: 2 DOSAGE FORMS DAILY;
     Route: 065
  88. ACETAMINOPHEN. [Concomitant]
     Active Substance: ACETAMINOPHEN
     Indication: PRODUCT USED FOR UNKNOWN INDICATION
  89. ACETYLSALICYLIC ACID;DIPYRIDAMOLE [Concomitant]
     Active Substance: ASPIRIN\DIPYRIDAMOLE
     Indication: PRODUCT USED FOR UNKNOWN INDICATION
     Route: 065
  90. FIBRE SOLUBLE/GLYCEROL/PHOSPHORICACID/POTASSIUMSORBATE/SODIUMBENZOATE [Concomitant]
     Indication: CONSTIPATION
     Route: 065
  91. ACEBUTOLOL HYDROCHLORIDE. [Suspect]
     Active Substance: ACEBUTOLOL HYDROCHLORIDE
     Route: 065
  92. AMITRIPTYLINE HYDROCHLORIDE. [Suspect]
     Active Substance: AMITRIPTYLINE HYDROCHLORIDE
     Dosage: 50 MILLIGRAM DAILY;
     Route: 065
  93. MORPHINE SULFATE. [Suspect]
     Active Substance: MORPHINE SULFATE
     Dosage: 10 MILLIGRAM DAILY;
     Route: 065
  94. CARBAMAZEPINE. [Suspect]
     Active Substance: CARBAMAZEPINE
     Route: 065
  95. MORPHINE [Suspect]
     Active Substance: MORPHINE
     Indication: PAIN
     Dosage: 10 MILLIGRAM DAILY;
     Route: 065
  96. NITROGLYCERIN. [Suspect]
     Active Substance: NITROGLYCERIN
     Route: 061
  97. OXAZEPAM. [Suspect]
     Active Substance: OXAZEPAM
     Indication: INSOMNIA
     Dosage: 15 MILLIGRAM DAILY;
     Route: 065
  98. QUINAPRIL HYDROCHLORIDE. [Suspect]
     Active Substance: QUINAPRIL HYDROCHLORIDE
     Dosage: 20 MILLIGRAM DAILY;
     Route: 065
  99. TIOTROPIUM BROMIDE [Suspect]
     Active Substance: TIOTROPIUM BROMIDE
     Indication: CHRONIC OBSTRUCTIVE PULMONARY DISEASE
     Dosage: 18 MICROGRAM DAILY;
     Route: 065
  100. SPIRIVA [Suspect]
     Active Substance: TIOTROPIUM BROMIDE MONOHYDRATE
     Indication: CHRONIC OBSTRUCTIVE PULMONARY DISEASE
     Route: 065
  101. CYCLOBENZAPRINE. [Suspect]
     Active Substance: CYCLOBENZAPRINE
     Indication: PAIN
     Dosage: 1.87 MILLIGRAM DAILY;
  102. AGGRENOX [Suspect]
     Active Substance: ASPIRIN\DIPYRIDAMOLE
     Dosage: 2 DOSAGE FORMS DAILY;
     Route: 065
  103. DIPYRIDAMOLE. [Suspect]
     Active Substance: DIPYRIDAMOLE
     Route: 065
  104. DULCOLAX NOS [Suspect]
     Active Substance: BISACODYL OR DOCUSATE SODIUM
     Indication: CONSTIPATION
     Dosage: 2 DOSAGE FORMS DAILY;
     Route: 065
  105. CRANBERRY [VACCINIUMMACROCARPON] [Concomitant]
     Indication: PRODUCT USED FOR UNKNOWN INDICATION
     Route: 065
  106. ACEBUTOLOL HYDROCHLORIDE. [Suspect]
     Active Substance: ACEBUTOLOL HYDROCHLORIDE
     Indication: CHEST PAIN
     Route: 065
  107. LACTULOSE. [Suspect]
     Active Substance: LACTULOSE
     Indication: CONSTIPATION
     Route: 065
  108. MAGNESIUM HYDROXIDE. [Suspect]
     Active Substance: MAGNESIUM HYDROXIDE
     Indication: CONSTIPATION
     Route: 065
  109. AMLODIPINE [Suspect]
     Active Substance: AMLODIPINE BESYLATE
     Indication: CORONARY ARTERY DISEASE
     Route: 065
  110. CARBAMAZEPINE. [Suspect]
     Active Substance: CARBAMAZEPINE
     Route: 065
  111. MORPHINE [Suspect]
     Active Substance: MORPHINE
     Indication: FIBROMYALGIA
  112. APO?DILTIAZ [Suspect]
     Active Substance: DILTIAZEM HYDROCHLORIDE
     Indication: HYPERTENSION
     Route: 065
  113. APO?DILTIAZ [Suspect]
     Active Substance: DILTIAZEM HYDROCHLORIDE
     Indication: ANGINA PECTORIS
     Dosage: 360 MILLIGRAM DAILY;
     Route: 065
  114. APO?OXAZEPAM [Suspect]
     Active Substance: OXAZEPAM
     Indication: INSOMNIA
     Dosage: 15 MILLIGRAM DAILY;
     Route: 065
  115. AVA?FUROSEMIDE [Suspect]
     Active Substance: FUROSEMIDE SODIUM
     Indication: OEDEMA
     Dosage: 40 MILLIGRAM DAILY;
     Route: 065
  116. GLUCOSAMINE [Suspect]
     Active Substance: GLUCOSAMINE
     Indication: ARTHRITIS
     Dosage: 1000 MILLIGRAM DAILY;
     Route: 065
  117. GLUCOSAMINE [Suspect]
     Active Substance: GLUCOSAMINE
     Dosage: 500 MILLIGRAM DAILY;
     Route: 065
  118. GLUCOSAMINE [Suspect]
     Active Substance: GLUCOSAMINE
     Dosage: 1000 MILLIGRAM DAILY;
     Route: 065
  119. NITROGLYCERIN. [Suspect]
     Active Substance: NITROGLYCERIN
     Indication: CHEST PAIN
     Route: 065
  120. NITROGLYCERIN. [Suspect]
     Active Substance: NITROGLYCERIN
     Dosage: 1 DOSAGE FORMS DAILY;
     Route: 065
  121. CYCLOBENZAPRINE. [Suspect]
     Active Substance: CYCLOBENZAPRINE
     Dosage: 1.87 MILLIGRAM DAILY;
     Route: 065
  122. CRANBERRY. [Suspect]
     Active Substance: CRANBERRY
     Indication: BLADDER DISORDER
     Dosage: 1500 MILLIGRAM DAILY;
     Route: 065
  123. ACETAMINOPHEN. [Concomitant]
     Active Substance: ACETAMINOPHEN
     Indication: PAIN
     Route: 065
  124. PSYLLIUM HUSK USP [Concomitant]
     Active Substance: PSYLLIUM HUSK
     Indication: CONSTIPATION
     Route: 065

REACTIONS (14)
  - Hypotension [Recovered/Resolved]
  - Mobility decreased [Recovered/Resolved]
  - Sedation complication [Recovered/Resolved]
  - Orthostatic hypotension [Recovered/Resolved]
  - Toxicity to various agents [Recovered/Resolved]
  - Balance disorder [Recovered/Resolved]
  - Cognitive disorder [Recovered/Resolved]
  - Creatinine renal clearance decreased [Recovered/Resolved]
  - Depressed level of consciousness [Recovered/Resolved]
  - Sedation [Recovered/Resolved]
  - Fall [Recovered/Resolved]
  - Blood calcium decreased [Recovered/Resolved]
  - Constipation [Recovered/Resolved]
  - Pain [Recovered/Resolved]
